FAERS Safety Report 14844775 (Version 1)
Quarter: 2018Q2

REPORT INFORMATION
  Report Type: Report from Study
  Country: None (occurrence: CO)
  Receive Date: 20180504
  Receipt Date: 20180504
  Transmission Date: 20180711
  Serious: Yes (Death, Hospitalization)
  Sender: FDA-Public Use
  Company Number: CO-ABBVIE-18K-036-2322526-00

PATIENT
  Age: 59 Year
  Sex: Male

DRUGS (1)
  1. HUMIRA [Suspect]
     Active Substance: ADALIMUMAB
     Indication: ANKYLOSING SPONDYLITIS
     Route: 058
     Dates: start: 20161117, end: 20180327

REACTIONS (6)
  - Pain [Fatal]
  - Vomiting [Fatal]
  - Tuberculosis [Fatal]
  - Pneumonia [Not Recovered/Not Resolved]
  - Pyrexia [Fatal]
  - Asthenia [Fatal]

NARRATIVE: CASE EVENT DATE: 20180405
